FAERS Safety Report 6108658-6 (Version None)
Quarter: 2009Q1

REPORT INFORMATION
  Report Type: 
  Country: None (occurrence: None)
  Receive Date: 20090305
  Receipt Date: 20090218
  Transmission Date: 20090719
  Serious: Yes (Hospitalization, Other)
  Sender: FDA-Public Use
  Company Number: MY-JNJFOC-20080800522

PATIENT
  Age: 59 Year
  Sex: Female
  Weight: 55 kg

DRUGS (5)
  1. DECITABINE (DECITABINE) LYOPHILIZED POWDER [Suspect]
     Indication: MYELODYSPLASTIC SYNDROME
     Dosage: 25 MG, INTRAVENOUS
     Route: 042
     Dates: start: 20080421, end: 20080425
  2. DECITABINE (DECITABINE) LYOPHILIZED POWDER [Suspect]
     Indication: MYELODYSPLASTIC SYNDROME
     Dosage: 25 MG, INTRAVENOUS
     Route: 042
     Dates: start: 20080703, end: 20080707
  3. DEFERIPRONE (DEFERIPRONE) UNSPECIFIED [Suspect]
     Indication: SERUM FERRITIN INCREASED
     Dosage: 1 G, 2 IN 2 DAY, ORAL
     Route: 048
     Dates: start: 20080601
  4. GLICLAZIDE (GLICLAZIDE) UNSPECIFIED [Concomitant]
  5. VITAMIN C (ASCORBIC ACID) UNSPECIFIED [Concomitant]

REACTIONS (8)
  - ABSCESS [None]
  - CULTURE WOUND POSITIVE [None]
  - ENTEROBACTER INFECTION [None]
  - PAIN [None]
  - PYREXIA [None]
  - SERUM FERRITIN INCREASED [None]
  - SKIN INFECTION [None]
  - SWELLING [None]
